FAERS Safety Report 6544202-7 (Version None)
Quarter: 2010Q1

REPORT INFORMATION
  Report Type: 
  Country: None (occurrence: None)
  Receive Date: 20100119
  Receipt Date: 20100119
  Transmission Date: 20100710
  Serious: No
  Sender: FDA-Public Use
  Company Number: None

PATIENT

DRUGS (2)
  1. PEG-INTRON [Suspect]
     Indication: HEPATITIS C
     Dosage: 96 MCG -0.4 ML- WEEKLY SQ
     Route: 058
     Dates: start: 20091108, end: 20100118
  2. RIBAVIRIN [Suspect]
     Indication: HEPATITIS C
     Dosage: 1000MG/DAY 400MGQAM; 600MG QPM PO
     Route: 048
     Dates: start: 20091108, end: 20100118

REACTIONS (9)
  - DEPRESSED LEVEL OF CONSCIOUSNESS [None]
  - DIARRHOEA [None]
  - DYSPNOEA [None]
  - EAR INFECTION [None]
  - EAR PAIN [None]
  - ECONOMIC PROBLEM [None]
  - FALL [None]
  - MOVEMENT DISORDER [None]
  - TOOTH DISORDER [None]
